FAERS Safety Report 7633476-7 (Version None)
Quarter: 2011Q3

REPORT INFORMATION
  Report Type: 
  Country: None (occurrence: None)
  Receive Date: 20110725
  Receipt Date: 20110428
  Transmission Date: 20111222
  Serious: Yes (Other)
  Sender: FDA-Public Use
  Company Number: US-BRISTOL-MYERS SQUIBB COMPANY-15662695

PATIENT
  Age: 72 Year
  Sex: Male
  Weight: 102 kg

DRUGS (5)
  1. TORSEMIDE [Concomitant]
  2. NEXIUM [Concomitant]
  3. SPRYCEL [Suspect]
     Indication: ACUTE LYMPHOCYTIC LEUKAEMIA
     Route: 048
     Dates: start: 20100520, end: 20110401
  4. CARDIZEM [Concomitant]
  5. WARFARIN SODIUM [Concomitant]

REACTIONS (2)
  - PULMONARY OEDEMA [None]
  - PLEURAL EFFUSION [None]
